FAERS Safety Report 14782992 (Version 2)
Quarter: 2018Q2

REPORT INFORMATION
  Report Type: Spontaneous
  Country: US (occurrence: US)
  Receive Date: 20180420
  Receipt Date: 20180531
  Transmission Date: 20180711
  Serious: No
  Sender: FDA-Public Use
  Company Number: US-PFIZER INC-2018162921

PATIENT
  Age: 55 Year
  Sex: Female

DRUGS (1)
  1. IBRANCE [Suspect]
     Active Substance: PALBOCICLIB
     Indication: BREAST CANCER FEMALE
     Dosage: 125 MG, DAILY
     Route: 048
     Dates: start: 20180417

REACTIONS (5)
  - Haemoglobin decreased [Unknown]
  - Fatigue [Unknown]
  - Dyspnoea [Unknown]
  - Somnolence [Unknown]
  - Arthralgia [Unknown]

NARRATIVE: CASE EVENT DATE: 20180417
